FAERS Safety Report 18939634 (Version 2)
Quarter: 2021Q2

REPORT INFORMATION
  Report Type: Spontaneous
  Country: SE (occurrence: SE)
  Receive Date: 20210224
  Receipt Date: 20210407
  Transmission Date: 20210717
  Serious: Yes (Other)
  Sender: FDA-Public Use
  Company Number: SE-US-PROVELL PHARMACEUTICALS LLC-9220308

PATIENT
  Age: 70 Year
  Sex: Female

DRUGS (2)
  1. EUTHYROX [Suspect]
     Active Substance: LEVOTHYROXINE SODIUM
     Indication: METABOLIC DISORDER
     Dosage: 150 UG 6 DAYS PER WEEK AND 100 UG ON THE 7TH DAY
     Dates: start: 20201217
  2. EUTHYROX [Suspect]
     Active Substance: LEVOTHYROXINE SODIUM
     Dosage: ONE TABLET TWO TIMES A WEEK AND ONE AND HALF TABLET FIVE TIMES PER WEEK
     Dates: start: 202102

REACTIONS (12)
  - Eye infection [Unknown]
  - Visual impairment [Unknown]
  - Glaucoma [Unknown]
  - Periorbital swelling [Unknown]
  - Hyperhidrosis [Unknown]
  - Back pain [Unknown]
  - Back disorder [Unknown]
  - Herpes zoster [Not Recovered/Not Resolved]
  - Weight decreased [Unknown]
  - Swelling of eyelid [Unknown]
  - Abdominal pain upper [Unknown]
  - Gait inability [Recovered/Resolved]

NARRATIVE: CASE EVENT DATE: 2021
